FAERS Safety Report 12142220 (Version 1)
Quarter: 2016Q1

REPORT INFORMATION
  Report Type: Other
  Country: IT (occurrence: IT)
  Receive Date: 20160303
  Receipt Date: 20160303
  Transmission Date: 20160526
  Serious: Yes (Other)
  Sender: FDA-Public Use
  Company Number: IT-MYLANLABS-2016M1008238

PATIENT

DRUGS (1)
  1. PACLITAXEL. [Suspect]
     Active Substance: PACLITAXEL
     Indication: BREAST CANCER
     Dosage: 120 MG CYCLICAL
     Route: 042

REACTIONS (3)
  - Chest pain [Recovering/Resolving]
  - Bronchospasm [Recovering/Resolving]
  - Hypovolaemia [Recovering/Resolving]

NARRATIVE: CASE EVENT DATE: 20160216
